FAERS Safety Report 4686638-5 (Version None)
Quarter: 2005Q2

REPORT INFORMATION
  Report Type: 
  Country: None (occurrence: None)
  Receive Date: 20050608
  Receipt Date: 20050530
  Transmission Date: 20051028
  Serious: Yes (Hospitalization)
  Sender: FDA-Public Use
  Company Number: 2005-05-2285

PATIENT
  Age: 30 Year
  Sex: Male

DRUGS (6)
  1. TRILAFON [Suspect]
     Indication: PSYCHOTIC DISORDER
     Dosage: 32 MG QD ORAL
     Route: 048
     Dates: start: 20041022, end: 20050321
  2. TRILAFON [Suspect]
     Indication: PSYCHOTIC DISORDER
     Dosage: 24 MG QD ORAL
     Route: 048
     Dates: end: 20040321
  3. ABILIFY (ARIPIPRAZOLE) TABLETS [Suspect]
     Indication: PSYCHOTIC DISORDER
     Dosage: 15 MG QD ORAL
     Route: 048
     Dates: start: 20050221, end: 20050223
  4. ABILIFY (ARIPIPRAZOLE) TABLETS [Suspect]
     Indication: PSYCHOTIC DISORDER
     Dosage: 10 MG QD ORAL
     Route: 048
     Dates: start: 20050223, end: 20050321
  5. IMOVANE TABLETS [Concomitant]
  6. RIVOTRIL TABLETS [Concomitant]

REACTIONS (5)
  - DIZZINESS [None]
  - DRUG INTERACTION [None]
  - HEADACHE [None]
  - NAUSEA [None]
  - VOMITING [None]
